FAERS Safety Report 6106040-9 (Version None)
Quarter: 2009Q1

REPORT INFORMATION
  Report Type: 
  Country: None (occurrence: None)
  Receive Date: 20090306
  Receipt Date: 20090223
  Transmission Date: 20090719
  Serious: Yes (Other)
  Sender: FDA-Public Use
  Company Number: ZA-GILEAD-2009-0020471

PATIENT
  Age: 29 Year
  Sex: Female
  Weight: 92.4 kg

DRUGS (13)
  1. TRUVADA [Suspect]
     Indication: HIV INFECTION
     Route: 048
     Dates: start: 20080813
  2. TRUVADA [Suspect]
     Route: 048
     Dates: start: 20080226, end: 20080620
  3. VIRAMUNE [Suspect]
     Indication: HIV INFECTION
     Route: 048
     Dates: start: 20080226, end: 20080729
  4. COMBIVIR [Suspect]
     Indication: HIV INFECTION
     Route: 048
     Dates: start: 20080620, end: 20080729
  5. FLAGYL [Concomitant]
     Dates: start: 20080126
  6. BACTRIM [Concomitant]
     Dates: start: 20080213
  7. VITAMIN B COMPLEX CAP [Concomitant]
     Dates: start: 20080325
  8. ASCORBIC ACID [Concomitant]
     Dates: start: 20080325
  9. PANADO [Concomitant]
     Dates: start: 20080516
  10. METHYL SALICYLATE [Concomitant]
     Dates: start: 20080518
  11. BRUFEN [Concomitant]
     Dates: start: 20080520
  12. ERYTHROMYCIN [Concomitant]
     Dates: start: 20080701
  13. CANEX [Concomitant]
     Dates: start: 20080701

REACTIONS (1)
  - ABORTION SPONTANEOUS [None]
